FAERS Safety Report 10095966 (Version 3)
Quarter: 2014Q2

REPORT INFORMATION
  Report Type: Report from Study
  Country: US (occurrence: US)
  Receive Date: 20140422
  Receipt Date: 20140530
  Transmission Date: 20141212
  Serious: Yes (Hospitalization)
  Sender: FDA-Public Use
  Company Number: US-SA-2014SA045916

PATIENT
  Age: 61 Year
  Sex: Male
  Weight: 86.18 kg

DRUGS (10)
  1. LANTUS SOLOSTAR [Suspect]
     Indication: TYPE 2 DIABETES MELLITUS
     Dosage: START DATE 2-3 YEARS AGO DOSE:10 UNIT(S)
     Route: 065
     Dates: start: 20121108
  2. SOLOSTAR [Concomitant]
     Indication: DEVICE THERAPY
     Dates: start: 20121108
  3. ALDACTONE [Concomitant]
     Indication: HEPATIC CIRRHOSIS
  4. ALDACTONE [Concomitant]
     Indication: ASCITES
  5. NEURONTIN [Concomitant]
  6. SYNTHROID [Concomitant]
  7. METOPROLOL TARTRATE [Concomitant]
     Indication: HEPATIC CIRRHOSIS
     Dosage: DOSE: 25
  8. METOPROLOL TARTRATE [Concomitant]
     Indication: ASCITES
     Dosage: DOSE: 25
  9. LASIX [Concomitant]
     Indication: HEPATIC CIRRHOSIS
     Dosage: DOSE: 20
  10. LASIX [Concomitant]
     Indication: ASCITES
     Dosage: DOSE: 20

REACTIONS (3)
  - Cellulitis [Recovering/Resolving]
  - Abasia [Recovering/Resolving]
  - Drug dose omission [Unknown]
